FAERS Safety Report 6212602-0 (Version None)
Quarter: 2009Q2

REPORT INFORMATION
  Report Type: 
  Country: None (occurrence: None)
  Receive Date: 20090602
  Receipt Date: 20090602
  Transmission Date: 20091009
  Serious: No
  Sender: FDA-Public Use
  Company Number: None

PATIENT
  Age: 34 Year
  Sex: Female
  Weight: 70.9 kg

DRUGS (1)
  1. ISOVUE-370 [Suspect]
     Indication: COMPUTERISED TOMOGRAM
     Dosage: 20ML X 1 IV
     Route: 042
     Dates: start: 20090528

REACTIONS (5)
  - LACRIMATION INCREASED [None]
  - PRURITUS [None]
  - SINUS CONGESTION [None]
  - THROAT IRRITATION [None]
  - URTICARIA [None]
